FAERS Safety Report 15723250 (Version 1)
Quarter: 2018Q4

REPORT INFORMATION
  Report Type: Report from Study
  Country: US (occurrence: US)
  Receive Date: 20181214
  Receipt Date: 20181214
  Transmission Date: 20190205
  Serious: Yes (Hospitalization)
  Sender: FDA-Public Use
  Company Number: US-BAYER-2018-229444

PATIENT
  Age: 21 Year
  Sex: Female
  Weight: 81.63 kg

DRUGS (4)
  1. ADEMPAS [Suspect]
     Active Substance: RIOCIGUAT
     Indication: PULMONARY ARTERIAL HYPERTENSION
     Dosage: UNK
     Dates: start: 20180914
  2. OPSUMIT [Concomitant]
     Active Substance: MACITENTAN
     Dosage: UNK
     Dates: end: 2018
  3. ADEMPAS [Suspect]
     Active Substance: RIOCIGUAT
     Indication: PULMONARY ARTERIAL HYPERTENSION
     Dosage: 2.5 MG, TID
     Route: 048
     Dates: end: 2018
  4. VELETRI [Concomitant]
     Active Substance: EPOPROSTENOL
     Dosage: UNK
     Dates: end: 2018

REACTIONS (1)
  - Transplant [Unknown]

NARRATIVE: CASE EVENT DATE: 20181202
